FAERS Safety Report 9548052 (Version 2)
Quarter: 2014Q2

REPORT INFORMATION
  Report Type: Spontaneous
  Country: CA (occurrence: US)
  Receive Date: 20130924
  Receipt Date: 20140414
  Transmission Date: 20141212
  Serious: Yes (Death, Other)
  Sender: FDA-Public Use
  Company Number: CA-PURDUE-USA-2011-0071281

PATIENT
  Age: 6 Week
  Sex: Female

DRUGS (3)
  1. MORPHINE SULFATE (SIMILAR TO NDA 19-516) [Suspect]
     Indication: PRODUCT USED FOR UNKNOWN INDICATION
  2. KLONOPIN [Concomitant]
     Indication: PRODUCT USED FOR UNKNOWN INDICATION
  3. VICOPROFEN [Concomitant]
     Indication: PRODUCT USED FOR UNKNOWN INDICATION

REACTIONS (8)
  - Overdose [Fatal]
  - Victim of homicide [Fatal]
  - Foetal exposure during pregnancy [Unknown]
  - Pallor [Unknown]
  - Weight decreased [Unknown]
  - Respiratory disorder [Unknown]
  - Exposure during breast feeding [Fatal]
  - Lethargy [Unknown]
